FAERS Safety Report 15691363 (Version 1)
Quarter: 2018Q4

REPORT INFORMATION
  Report Type: Spontaneous
  Country: GB (occurrence: GB)
  Receive Date: 20181205
  Receipt Date: 20181205
  Transmission Date: 20190205
  Serious: Yes (Disabling)
  Sender: FDA-Public Use
  Company Number: GB-SAKK-2018SA327316AA

PATIENT
  Age: 72 Year
  Sex: Female
  Weight: 70 kg

DRUGS (7)
  1. ALENDRONIC ACID [Concomitant]
     Active Substance: ALENDRONIC ACID
     Dosage: 1 DF QW
     Dates: start: 20171106
  2. HYLO-FORTE [Concomitant]
     Active Substance: HYALURONATE SODIUM
     Dosage: 5 DF QD BOTH EYES
     Route: 047
     Dates: start: 20180201
  3. PREDNISOLONE. [Concomitant]
     Active Substance: PREDNISOLONE
     Dosage: AS DIRECTED
     Dates: start: 20180924
  4. TRAVOPROST. [Concomitant]
     Active Substance: TRAVOPROST
     Dosage: 1 GTT QD
     Dates: start: 20171219
  5. TIMOLOL. [Concomitant]
     Active Substance: TIMOLOL
     Dosage: 1 GGT QD
     Dates: start: 20171106
  6. LEFLUNOMIDE. [Suspect]
     Active Substance: LEFLUNOMIDE
     Dosage: 10 MG QD
     Dates: start: 20181003, end: 20181108
  7. ADCAL [CALCIUM CARBONATE] [Concomitant]
     Dosage: 2 DF QD
     Dates: start: 20171219

REACTIONS (4)
  - Blood pressure increased [Unknown]
  - Abdominal discomfort [Unknown]
  - Nausea [Unknown]
  - Tachycardia [Unknown]
